FAERS Safety Report 20175335 (Version 1)
Quarter: 2021Q4

REPORT INFORMATION
  Report Type: Spontaneous
  Country: US (occurrence: None)
  Receive Date: 20211209
  Receipt Date: 20211209
  Transmission Date: 20220304
  Serious: Yes (Life-Threatening)
  Sender: FDA-Public Use
  Company Number: None

PATIENT
  Age: 40 Year
  Sex: Male
  Weight: 72.2 kg

DRUGS (1)
  1. SULFUR HEXAFLUORIDE [Suspect]
     Active Substance: SULFUR HEXAFLUORIDE
     Indication: Cardiac imaging procedure
     Dosage: OTHER FREQUENCY : ONCE;?
     Route: 042
     Dates: start: 20211204, end: 20211204

REACTIONS (8)
  - Back pain [None]
  - Mental status changes [None]
  - Hyperhidrosis [None]
  - Flushing [None]
  - Unresponsive to stimuli [None]
  - Vomiting [None]
  - Heart rate increased [None]
  - Hypotension [None]

NARRATIVE: CASE EVENT DATE: 20211205
